FAERS Safety Report 4810139-4 (Version None)
Quarter: 2005Q4

REPORT INFORMATION
  Report Type: 
  Country: None (occurrence: None)
  Receive Date: 20051024
  Receipt Date: 20051024
  Transmission Date: 20060501
  Serious: Yes (Other)
  Sender: FDA-Public Use
  Company Number: None

PATIENT
  Sex: Female
  Weight: 58.6 kg

DRUGS (6)
  1. OXALIPLATIN [Suspect]
     Dosage: SEE IMAGE
     Route: 042
     Dates: end: 20051011
  2. LEUCOVORIN [Suspect]
     Dosage: SEE IMAGE
     Route: 042
     Dates: end: 20051011
  3. FLUOROURACIL [Suspect]
     Dosage: SEE IMAGE
     Route: 040
     Dates: end: 20050929
  4. FLUOROURACIL [Suspect]
     Dosage: SEE IMAGE
     Route: 040
     Dates: start: 20051011
  5. FLUOROURACIL [Suspect]
     Dosage: SEE IMAGE
     Route: 042
     Dates: end: 20050929
  6. FLUOROURACIL [Suspect]
     Dosage: SEE IMAGE
     Route: 042
     Dates: start: 20051011

REACTIONS (11)
  - AGITATION [None]
  - CONVULSION [None]
  - DRUG HYPERSENSITIVITY [None]
  - HYPERHIDROSIS [None]
  - HYPERVENTILATION [None]
  - HYPOTENSION [None]
  - INFUSION RELATED REACTION [None]
  - MENTAL STATUS CHANGES [None]
  - PROTEINURIA [None]
  - SYNCOPE [None]
  - URINARY INCONTINENCE [None]
